FAERS Safety Report 6045901-6 (Version None)
Quarter: 2009Q1

REPORT INFORMATION
  Report Type: 
  Country: None (occurrence: None)
  Receive Date: 20090121
  Receipt Date: 20090106
  Transmission Date: 20090719
  Serious: Yes (Life-Threatening, Hospitalization, Other)
  Sender: FDA-Public Use
  Company Number: ES-GENENTECH-262055

PATIENT

DRUGS (5)
  1. RITUXIMAB [Suspect]
     Indication: B-CELL LYMPHOMA
     Dosage: 375 MG/M2, Q21D
     Route: 042
     Dates: start: 20060125
  2. RITUXIMAB [Suspect]
     Dosage: 375 MG/M2, Q8W
     Route: 042
     Dates: start: 20060824
  3. FLUDARABINE PHOSPHATE [Suspect]
     Indication: B-CELL LYMPHOMA
     Dosage: 25 MG/M2, QDX3D/28DC
     Route: 042
  4. MITOXANTRONE [Suspect]
     Indication: B-CELL LYMPHOMA
     Dosage: 6 MG/M2, Q28D
     Route: 042
  5. CYCLOPHOSPHAMIDE [Suspect]
     Indication: B-CELL LYMPHOMA
     Dosage: 200 MG/M2, QDX3D/28DC
     Route: 042

REACTIONS (1)
  - COLON CANCER [None]
